FAERS Safety Report 25447474 (Version 1)
Quarter: 2025Q2

REPORT INFORMATION
  Report Type: Spontaneous
  Country: FR (occurrence: FR)
  Receive Date: 20250617
  Receipt Date: 20250617
  Transmission Date: 20250717
  Serious: Yes (Hospitalization)
  Sender: MYLAN
  Company Number: None

PATIENT
  Age: 76 Year
  Sex: Male

DRUGS (11)
  1. VALACYCLOVIR HYDROCHLORIDE [Suspect]
     Active Substance: VALACYCLOVIR HYDROCHLORIDE
     Indication: Infection prophylaxis
     Dosage: 1 GRAM, QD
     Dates: start: 2022, end: 20250521
  2. DULOXETINE [Suspect]
     Active Substance: DULOXETINE
     Indication: Neuropathy peripheral
     Dosage: 30 MILLIGRAM, QD
     Dates: start: 20250103, end: 20250521
  3. GABAPENTIN [Suspect]
     Active Substance: GABAPENTIN
     Indication: Neuropathy peripheral
     Dosage: 3.6 GRAM, QD
     Dates: start: 202403, end: 20250521
  4. IXAZOMIB CITRATE [Concomitant]
     Active Substance: IXAZOMIB CITRATE
  5. IBERDOMIDE [Concomitant]
     Active Substance: IBERDOMIDE
  6. ATOVAQUONE [Concomitant]
     Active Substance: ATOVAQUONE
  7. ELIQUIS [Concomitant]
     Active Substance: APIXABAN
  8. AMLODIPINE [Concomitant]
     Active Substance: AMLODIPINE BESYLATE
  9. PANTOPRAZOLE [Concomitant]
     Active Substance: PANTOPRAZOLE
  10. ALLOPURINOL [Concomitant]
     Active Substance: ALLOPURINOL
  11. FOLIC ACID [Concomitant]
     Active Substance: FOLIC ACID

REACTIONS (1)
  - Mixed liver injury [Recovering/Resolving]

NARRATIVE: CASE EVENT DATE: 20250521
